FAERS Safety Report 9863884 (Version 2)
Quarter: 2014Q1

REPORT INFORMATION
  Report Type: Spontaneous
  Country: JP (occurrence: JP)
  Receive Date: 20140203
  Receipt Date: 20140226
  Transmission Date: 20141002
  Serious: Yes (Other)
  Sender: FDA-Public Use
  Company Number: JP-GLAXOSMITHKLINE-B0965161A

PATIENT
  Sex: Male

DRUGS (1)
  1. SERETIDE (50MCG/250MCG) [Suspect]
     Indication: PRODUCT USED FOR UNKNOWN INDICATION
     Dosage: 250MCG TWICE PER DAY
     Route: 055

REACTIONS (2)
  - Respiratory moniliasis [Unknown]
  - White blood cell count increased [Unknown]
